FAERS Safety Report 21971297 (Version 3)
Quarter: 2023Q1

REPORT INFORMATION
  Report Type: Spontaneous
  Country: KR (occurrence: KR)
  Receive Date: 20230209
  Receipt Date: 20230317
  Transmission Date: 20230418
  Serious: Yes (Hospitalization, Other)
  Sender: FDA-Public Use
  Company Number: KR-SA-SAC20230208000600

PATIENT
  Age: 59 Year
  Sex: Male
  Weight: 89.8 kg

DRUGS (20)
  1. OXALIPLATIN [Suspect]
     Active Substance: OXALIPLATIN
     Indication: Colon cancer stage IV
     Dosage: 270 MG, 1X
     Route: 042
     Dates: start: 20230110
  2. OXALIPLATIN [Suspect]
     Active Substance: OXALIPLATIN
     Indication: Metastases to lung
     Dosage: 104 MG/M2, Q3W
     Route: 042
     Dates: start: 20230214
  3. CAPECITABINE [Suspect]
     Active Substance: CAPECITABINE
     Indication: Colon cancer stage IV
     Dosage: 2150 MG, BID
     Route: 048
     Dates: start: 20230110
  4. CAPECITABINE [Suspect]
     Active Substance: CAPECITABINE
     Indication: Metastases to lung
     Dosage: 800 MG/M2, BID
     Route: 048
     Dates: start: 20230214
  5. ALMAGATE [Concomitant]
     Active Substance: ALMAGATE
     Indication: Abdominal pain upper
     Dosage: 15 ML, QD
     Route: 048
     Dates: start: 20230117
  6. MACPERAN [METOCLOPRAMIDE HYDROCHLORIDE] [Concomitant]
     Indication: Nausea
     Dosage: 17 MG, TID
     Route: 048
     Dates: start: 20230117
  7. ENCOVER [Concomitant]
     Indication: Nutritional supplementation
     Dosage: 200 ML, BID
     Route: 048
     Dates: start: 20230117
  8. ACETAMINOPHEN [Concomitant]
     Active Substance: ACETAMINOPHEN
     Indication: Large intestine infection
     Dosage: 650 MG, TID
     Route: 048
     Dates: start: 20230126
  9. GANAKHAN [Concomitant]
     Indication: Abdominal pain upper
     Dosage: 50 MG, TID
     Route: 048
     Dates: start: 20230126, end: 20230130
  10. FOTAGEL [Concomitant]
     Indication: Diarrhoea
     Dosage: 20 ML, TID
     Route: 048
     Dates: start: 20230126, end: 20230130
  11. TIROPRAMIDE [Concomitant]
     Active Substance: TIROPRAMIDE
     Indication: Enteritis
     Dosage: 100 MG, TID, END DATE: 27-FEB-2023
     Route: 048
     Dates: start: 20230126
  12. CITOPCIN [CIPROFLOXACIN HYDROCHLORIDE] [Concomitant]
     Indication: Enteritis
     Dosage: 500 MG, BID
     Route: 048
     Dates: start: 20230126, end: 20230131
  13. ACETPHEN PREMIX [Concomitant]
     Indication: Enteritis
     Dosage: 1 G, 1X
     Route: 042
     Dates: start: 20230126, end: 20230128
  14. CIPROFLOXACIN HYDROCHLORIDE\HYDROCORTISONE [Concomitant]
     Active Substance: CIPROFLOXACIN HYDROCHLORIDE\HYDROCORTISONE
     Indication: Enteritis
     Dosage: 400 MG, 1X
     Route: 042
     Dates: start: 20230126, end: 20230128
  15. ACETAMINOPHEN [Concomitant]
     Active Substance: ACETAMINOPHEN
     Indication: Enteritis
     Dosage: 600 MG, TID
     Route: 048
     Dates: start: 20230128, end: 20230130
  16. ACETAMINOPHEN [Concomitant]
     Active Substance: ACETAMINOPHEN
     Indication: Pyrexia
  17. MEPERIDINE HYDROCHLORIDE [Concomitant]
     Active Substance: MEPERIDINE HYDROCHLORIDE
     Indication: Enteritis
     Dosage: 35 MG, 1X
     Route: 042
     Dates: start: 20230128
  18. DIETARY SUPPLEMENT\HERBALS\MILK THISTLE [Concomitant]
     Active Substance: DIETARY SUPPLEMENT\HERBALS\MILK THISTLE
     Indication: Hepatitis
     Dosage: 140 MG, BID
     Route: 048
     Dates: start: 20230131
  19. GODEX [ADENINE HYDROCHLORIDE;BIFENDATE;CARNITINE OROTATE;CYANOCOBALAMI [Concomitant]
     Indication: Hepatitis
     Dosage: 2 UNK, BID
     Route: 048
     Dates: start: 20230131
  20. LOPAINE [Concomitant]
     Indication: Abdominal pain upper
     Dosage: 2 MG, TID
     Route: 048
     Dates: start: 20230131

REACTIONS (4)
  - Enteritis [Recovered/Resolved]
  - Diarrhoea [Recovered/Resolved]
  - Pyrexia [Recovered/Resolved]
  - Hepatitis toxic [Recovered/Resolved]

NARRATIVE: CASE EVENT DATE: 20230126
